FAERS Safety Report 9949056 (Version 1)
Quarter: 2014Q1

REPORT INFORMATION
  Report Type: Spontaneous
  Country: JP (occurrence: JP)
  Receive Date: 20140304
  Receipt Date: 20140304
  Transmission Date: 20141002
  Serious: Yes (Other)
  Sender: FDA-Public Use
  Company Number: JP-ABBVIE-14P-087-1206130-00

PATIENT
  Age: 12 Month
  Sex: Male

DRUGS (1)
  1. ULTANE [Suspect]
     Indication: PRODUCT USED FOR UNKNOWN INDICATION

REACTIONS (8)
  - Atrial tachycardia [Unknown]
  - Atrial tachycardia [Unknown]
  - Supraventricular extrasystoles [Unknown]
  - Ventricular extrasystoles [Unknown]
  - Atrioventricular block [Unknown]
  - Supraventricular extrasystoles [Unknown]
  - Blood pressure decreased [Unknown]
  - Atrial fibrillation [Unknown]
